FAERS Safety Report 4435928-X (Version None)
Quarter: 2004Q3

REPORT INFORMATION
  Report Type: 
  Country: None (occurrence: None)
  Receive Date: 20040726
  Receipt Date: 20040310
  Transmission Date: 20050211
  Serious: No
  Sender: FDA-Public Use
  Company Number: USA040360596

PATIENT
  Age: 75 Year
  Sex: Female
  Weight: 47 kg

DRUGS (11)
  1. FORTEO [Suspect]
     Indication: OSTEOPOROSIS
     Dosage: 20 UG/1 DAY
     Dates: start: 20040301
  2. EVISTA [Concomitant]
  3. MIACALCIN [Concomitant]
  4. CLOBETASOL [Concomitant]
  5. PREMARIN [Concomitant]
  6. CALCIUM WITH VITAMIN D [Concomitant]
  7. VITAMIN C [Concomitant]
  8. VITAMIN E [Concomitant]
  9. MULTI-VITAMIN [Concomitant]
  10. TMOLOL [Concomitant]
  11. LUMIGAN [Concomitant]

REACTIONS (2)
  - INJECTION SITE HAEMORRHAGE [None]
  - PAIN [None]
